FAERS Safety Report 9737017 (Version 2)
Quarter: 2015Q3

REPORT INFORMATION
  Report Type: Spontaneous
  Country: US (occurrence: US)
  Receive Date: 20131206
  Receipt Date: 20150804
  Transmission Date: 20151125
  Serious: No
  Sender: FDA-Public Use
  Company Number: US-GILEAD-2009-0024146

PATIENT
  Age: 57 Year
  Sex: Female

DRUGS (8)
  1. ACIPHEX [Concomitant]
     Active Substance: RABEPRAZOLE SODIUM
  2. DOXYCYCLINE. [Concomitant]
     Active Substance: DOXYCYCLINE
  3. COUMADIN [Concomitant]
     Active Substance: WARFARIN SODIUM
  4. LAMICTAL [Concomitant]
     Active Substance: LAMOTRIGINE
  5. SEROQUEL [Concomitant]
     Active Substance: QUETIAPINE FUMARATE
  6. LETAIRIS [Suspect]
     Active Substance: AMBRISENTAN
     Indication: PULMONARY ARTERIAL HYPERTENSION
     Route: 048
     Dates: start: 20080312
  7. REMODULIN [Concomitant]
     Active Substance: TREPROSTINIL
  8. LITHIUM CARBONATE. [Concomitant]
     Active Substance: LITHIUM CARBONATE

REACTIONS (1)
  - Pyrexia [Not Recovered/Not Resolved]
